FAERS Safety Report 8332679 (Version 3)
Quarter: 2014Q3

REPORT INFORMATION
  Report Type: Spontaneous
  Country: US (occurrence: US)
  Receive Date: 20120111
  Receipt Date: 20140924
  Transmission Date: 20150326
  Serious: No
  Sender: FDA-Public Use
  Company Number: US-AMGEN-USASP2011064269

PATIENT
  Age: 15 Year
  Sex: Female
  Weight: 64 kg

DRUGS (8)
  1. ERGOCALCIFEROL. [Concomitant]
     Active Substance: ERGOCALCIFEROL
     Indication: VITAMIN SUPPLEMENTATION
     Dosage: 50000 UNK, QWK
     Route: 048
  2. RELAFEN [Concomitant]
     Active Substance: NABUMETONE
     Indication: TENDONITIS
     Dosage: 100 MG, BID
     Route: 048
     Dates: start: 20090904
  3. PREDNISONE. [Concomitant]
     Active Substance: PREDNISONE
     Indication: TENDONITIS
     Dosage: 5 MG, QD
     Route: 048
     Dates: start: 20111103
  4. ENBREL [Suspect]
     Active Substance: ETANERCEPT
     Indication: JUVENILE IDIOPATHIC ARTHRITIS
     Dosage: 50 MG, QWK
     Route: 065
     Dates: start: 20100925
  5. METHOTREXATE [Concomitant]
     Active Substance: METHOTREXATE
     Indication: TENDONITIS
     Dosage: 25 MG, QWK
     Dates: start: 20111031
  6. LEXAPRO [Concomitant]
     Active Substance: ESCITALOPRAM OXALATE
     Dosage: 30 MG, QD
     Route: 048
     Dates: start: 20101105
  7. SIMPONI [Concomitant]
     Active Substance: GOLIMUMAB
     Dosage: UNK
  8. HUMIRA [Concomitant]
     Active Substance: ADALIMUMAB
     Dosage: UNK

REACTIONS (5)
  - Viral infection [Not Recovered/Not Resolved]
  - Arthralgia [Not Recovered/Not Resolved]
  - Drug ineffective [Recovered/Resolved]
  - Bacterial infection [Not Recovered/Not Resolved]
  - Injection site pain [Not Recovered/Not Resolved]

NARRATIVE: CASE EVENT DATE: 201003
